FAERS Safety Report 5572253-8 (Version None)
Quarter: 2007Q4

REPORT INFORMATION
  Report Type: 
  Country: None (occurrence: None)
  Receive Date: 20071221
  Receipt Date: 20071210
  Transmission Date: 20080405
  Serious: Yes (Other)
  Sender: FDA-Public Use
  Company Number: US-PFIZER INC-2007104581

PATIENT
  Sex: Male
  Weight: 100 kg

DRUGS (8)
  1. LYRICA [Suspect]
     Indication: NEUROPATHY PERIPHERAL
     Route: 048
  2. PLAQUENIL [Suspect]
     Indication: SYSTEMIC LUPUS ERYTHEMATOSUS
  3. PREDNISONE [Concomitant]
  4. ATENOLOL [Concomitant]
  5. LIPITOR [Concomitant]
  6. COLCHICINE [Concomitant]
  7. FUROSEMIDE [Concomitant]
  8. ISOSORBIDE DINITRATE [Concomitant]

REACTIONS (6)
  - ARTHRITIS [None]
  - BODY TEMPERATURE INCREASED [None]
  - DRUG INEFFECTIVE [None]
  - MACULAR DEGENERATION [None]
  - SYSTEMIC LUPUS ERYTHEMATOSUS [None]
  - VISUAL FIELD DEFECT [None]
